FAERS Safety Report 16576689 (Version 2)
Quarter: 2019Q3

REPORT INFORMATION
  Report Type: Spontaneous
  Country: US (occurrence: US)
  Receive Date: 20190716
  Receipt Date: 20190719
  Transmission Date: 20191004
  Serious: No
  Sender: FDA-Public Use
  Company Number: US-DRREDDYS-USA/USA/19/0112050

PATIENT

DRUGS (1)
  1. VIGABATRIN. [Suspect]
     Active Substance: VIGABATRIN
     Indication: TUBEROUS SCLEROSIS COMPLEX
     Route: 065

REACTIONS (1)
  - Behaviour disorder [Recovered/Resolved]
